FAERS Safety Report 19508681 (Version 6)
Quarter: 2021Q4

REPORT INFORMATION
  Report Type: Spontaneous
  Country: IN (occurrence: IN)
  Receive Date: 20210708
  Receipt Date: 20211111
  Transmission Date: 20220303
  Serious: Yes (Hospitalization, Other)
  Sender: FDA-Public Use
  Company Number: IN-PFIZER INC-2020520865

PATIENT
  Age: 50 Year
  Sex: Female

DRUGS (4)
  1. PALBOCICLIB [Suspect]
     Active Substance: PALBOCICLIB
     Indication: Breast cancer metastatic
     Dosage: 125 MG, 1X/DAY
     Route: 048
     Dates: start: 20200205
  2. PALBOCICLIB [Suspect]
     Active Substance: PALBOCICLIB
     Dosage: 125 MG, 1X/DAY
     Route: 048
     Dates: start: 20210620, end: 202108
  3. PALBOCICLIB [Suspect]
     Active Substance: PALBOCICLIB
     Dosage: 125 MG, 1X/DAY
     Route: 048
     Dates: end: 20211018
  4. FULVESTRANT [Concomitant]
     Active Substance: FULVESTRANT

REACTIONS (9)
  - SARS-CoV-2 test positive [Recovered/Resolved]
  - Haemorrhage [Unknown]
  - Haemoglobin decreased [Unknown]
  - Gait inability [Unknown]
  - Neoplasm progression [Unknown]
  - Platelet count decreased [Unknown]
  - Asthenia [Unknown]
  - Off label use [Unknown]
  - Pain in extremity [Unknown]

NARRATIVE: CASE EVENT DATE: 20210608
